FAERS Safety Report 6254286-1 (Version None)
Quarter: 2009Q3

REPORT INFORMATION
  Report Type: 
  Country: None (occurrence: None)
  Receive Date: 20090702
  Receipt Date: 20090624
  Transmission Date: 20100115
  Serious: Yes (Hospitalization)
  Sender: FDA-Public Use
  Company Number: US-BAXTER-2009BH010552

PATIENT
  Age: 43 Year
  Sex: Female

DRUGS (4)
  1. CYCLOPHOSPHAMIDE [Suspect]
     Indication: BREAST CANCER
     Route: 065
     Dates: start: 20080514
  2. DOXORUBICIN HYDROCHLORIDE [Suspect]
     Indication: BREAST CANCER
     Route: 065
     Dates: start: 20090514
  3. PACLITAXEL [Suspect]
     Indication: BREAST CANCER
     Route: 042
  4. BEVACIZUMAB [Suspect]
     Indication: BREAST CANCER
     Route: 042
     Dates: start: 20090514

REACTIONS (3)
  - ANAEMIA [None]
  - CHALAZION [None]
  - PERIORBITAL CELLULITIS [None]
